FAERS Safety Report 4366631-2 (Version None)
Quarter: 2004Q2

REPORT INFORMATION
  Report Type: 
  Country: None (occurrence: None)
  Receive Date: 20040527
  Receipt Date: 20040518
  Transmission Date: 20050107
  Serious: Yes (Life-Threatening, Hospitalization, Other)
  Sender: FDA-Public Use
  Company Number: FR-BRISTOL-MYERS SQUIBB COMPANY-12591277

PATIENT
  Age: 44 Year
  Sex: Male
  Weight: 70 kg

DRUGS (6)
  1. ZERIT [Suspect]
     Route: 048
     Dates: start: 20020615, end: 20040404
  2. INTERFERON ALFA-2B [Suspect]
     Indication: HEPATITIS C
     Dosage: INITIATED IN 1998 OR 1999
     Route: 058
     Dates: end: 20031201
  3. EPIVIR [Suspect]
     Indication: HIV INFECTION
     Route: 048
  4. REBETOL [Suspect]
     Indication: HEPATITIS C
     Route: 048
     Dates: start: 20031015, end: 20031201
  5. VIREAD [Suspect]
     Indication: HIV INFECTION
     Route: 048
     Dates: start: 20020615, end: 20040404
  6. INSULIN [Concomitant]
     Indication: DIABETES MELLITUS NON-INSULIN-DEPENDENT
     Dates: start: 20030401

REACTIONS (9)
  - ASCITES [None]
  - DIARRHOEA [None]
  - ENCEPHALOPATHY [None]
  - ESCHERICHIA SEPSIS [None]
  - HEPATIC FAILURE [None]
  - INSULIN RESISTANCE [None]
  - LACTIC ACIDOSIS [None]
  - PORTAL HYPERTENSION [None]
  - VARICES OESOPHAGEAL [None]
